FAERS Safety Report 5145492-8 (Version None)
Quarter: 2006Q4

REPORT INFORMATION
  Report Type: 
  Country: None (occurrence: None)
  Receive Date: 20061101
  Receipt Date: 20061019
  Transmission Date: 20070319
  Serious: Yes (Hospitalization)
  Sender: FDA-Public Use
  Company Number: 199254

PATIENT
  Age: 38 Year
  Sex: Female

DRUGS (4)
  1. AVONEX [Suspect]
     Indication: MULTIPLE SCLEROSIS
     Dosage: 30 UG;QW;IM
     Route: 029
     Dates: start: 20010817, end: 20030901
  2. AVONEX [Suspect]
     Indication: MULTIPLE SCLEROSIS
     Dosage: 30 UG;QW;IM
     Route: 029
     Dates: start: 20031101, end: 20060601
  3. AVONEX [Suspect]
     Dosage: 30 MCG;QW; 30 UG;QW
     Dates: start: 20030901, end: 20031101
  4. AVONEX [Suspect]
     Dosage: 30 MCG;QW; 30 UG;QW
     Dates: start: 20061016

REACTIONS (2)
  - PNEUMONIA [None]
  - SARCOIDOSIS [None]
